FAERS Safety Report 4388976-2 (Version None)
Quarter: 2004Q2

REPORT INFORMATION
  Report Type: 
  Country: None (occurrence: None)
  Receive Date: 20040628
  Receipt Date: 20040616
  Transmission Date: 20050107
  Serious: Yes (Death)
  Sender: FDA-Public Use
  Company Number: BRO-006639

PATIENT
  Age: 56 Year
  Sex: Male

DRUGS (6)
  1. IOPAMIDOL-370 [Suspect]
     Indication: CORONARY ANGIOPLASTY
     Dosage: 300 ML INTRACORONARY; A FEW MINS
     Route: 022
     Dates: start: 20030729, end: 20030729
  2. IOPAMIDOL-370 [Suspect]
     Indication: CORONARY ARTERY RESTENOSIS
     Dosage: 300 ML INTRACORONARY; A FEW MINS
     Route: 022
     Dates: start: 20030729, end: 20030729
  3. ASPIRIN [Concomitant]
  4. ENALAPRIL MALEATE [Concomitant]
  5. FAMOTIDINE [Concomitant]
  6. CARVEDILOL [Concomitant]

REACTIONS (13)
  - ALANINE AMINOTRANSFERASE INCREASED [None]
  - ANAPHYLACTIC SHOCK [None]
  - ARTERIOSPASM CORONARY [None]
  - ASPARTATE AMINOTRANSFERASE INCREASED [None]
  - BLOOD LACTATE DEHYDROGENASE INCREASED [None]
  - CARDIO-RESPIRATORY ARREST [None]
  - CATHETER RELATED INFECTION [None]
  - HAEMODIALYSIS [None]
  - MULTI-ORGAN FAILURE [None]
  - RENAL FAILURE ACUTE [None]
  - RESPIRATORY TRACT INFECTION [None]
  - SEPSIS [None]
  - VENTRICULAR FIBRILLATION [None]
